FAERS Safety Report 19752775 (Version 7)
Quarter: 2022Q2

REPORT INFORMATION
  Report Type: Report from Study
  Country: CL (occurrence: CL)
  Receive Date: 20210826
  Receipt Date: 20220512
  Transmission Date: 20220720
  Serious: Yes (Other)
  Sender: FDA-Public Use
  Company Number: NVSC2020CL145268

PATIENT
  Age: 61 Year
  Sex: Female

DRUGS (7)
  1. KISQALI [Suspect]
     Active Substance: RIBOCICLIB
     Indication: Breast cancer stage IV
     Dosage: 600 MG, QD
     Route: 048
     Dates: start: 20200121, end: 202202
  2. KISQALI [Suspect]
     Active Substance: RIBOCICLIB
     Dosage: 600 MG, QD
     Route: 048
     Dates: start: 20200608
  3. KISQALI [Suspect]
     Active Substance: RIBOCICLIB
     Dosage: 200 MG
     Route: 065
  4. KISQALI [Suspect]
     Active Substance: RIBOCICLIB
     Dosage: UNK
     Route: 065
  5. LETROZOLE [Suspect]
     Active Substance: LETROZOLE
     Indication: Product used for unknown indication
     Dosage: (2.5 MM) QD
     Route: 065
  6. LOSARTAN [Concomitant]
     Active Substance: LOSARTAN
     Indication: Diabetes mellitus
     Dosage: UNK
     Route: 065
  7. LOSARTAN [Concomitant]
     Active Substance: LOSARTAN
     Indication: Hypertension

REACTIONS (33)
  - Pulmonary mass [Unknown]
  - Diabetes mellitus [Unknown]
  - Blindness unilateral [Unknown]
  - Glaucoma [Recovered/Resolved]
  - Eye disorder [Unknown]
  - Eye haemorrhage [Unknown]
  - Eye ulcer [Unknown]
  - Pancreatic mass [Unknown]
  - Cyst [Unknown]
  - Calcification metastatic [Unknown]
  - Breast cancer recurrent [Unknown]
  - Hypoaesthesia [Not Recovered/Not Resolved]
  - Gait disturbance [Not Recovered/Not Resolved]
  - Tonsillitis [Unknown]
  - Anxiety [Unknown]
  - Oropharyngeal pain [Not Recovered/Not Resolved]
  - Vomiting [Unknown]
  - Drug ineffective [Unknown]
  - Eating disorder [Unknown]
  - Abdominal discomfort [Unknown]
  - Personality change [Unknown]
  - Asthenia [Unknown]
  - Malaise [Unknown]
  - Hyperglycaemia [Unknown]
  - Pain [Unknown]
  - Product supply issue [Unknown]
  - Drug resistance [Unknown]
  - Hyperhidrosis [Unknown]
  - Therapeutic response unexpected [Unknown]
  - Discomfort [Unknown]
  - Nausea [Unknown]
  - Depressed mood [Unknown]
  - Fatigue [Unknown]

NARRATIVE: CASE EVENT DATE: 20200608
